FAERS Safety Report 24654414 (Version 5)
Quarter: 2025Q1

REPORT INFORMATION
  Report Type: Spontaneous
  Country: CO (occurrence: CO)
  Receive Date: 20241122
  Receipt Date: 20250319
  Transmission Date: 20250408
  Serious: Yes (Other)
  Sender: SANDOZ
  Company Number: CO-002147023-NVSC2024CO207171

PATIENT
  Sex: Female
  Weight: 51 kg

DRUGS (8)
  1. FEMARA [Suspect]
     Active Substance: LETROZOLE
     Indication: Hormone receptor positive HER2 negative breast cancer
     Dosage: 2.5 MG, QD
     Route: 048
     Dates: start: 20241004
  2. FEMARA [Suspect]
     Active Substance: LETROZOLE
     Indication: Breast cancer metastatic
  3. FEMARA [Suspect]
     Active Substance: LETROZOLE
     Indication: Breast cancer metastatic
  4. FULVESTRANT [Suspect]
     Active Substance: FULVESTRANT
     Indication: Product used for unknown indication
     Route: 065
  5. KISQALI [Suspect]
     Active Substance: RIBOCICLIB
     Indication: Hormone receptor positive HER2 negative breast cancer
     Dosage: 600 MG, QD
     Route: 048
     Dates: start: 20241004
  6. KISQALI [Suspect]
     Active Substance: RIBOCICLIB
     Indication: Breast cancer metastatic
     Route: 065
     Dates: start: 20241019
  7. ESOMEPRAZOLE [Concomitant]
     Active Substance: ESOMEPRAZOLE
     Indication: Gastritis
     Dosage: 1 DOSAGE FORM, IN THE MORNING AND AT NIGHT
     Route: 065
  8. LETROZOLE [Concomitant]
     Active Substance: LETROZOLE
     Indication: Product used for unknown indication
     Route: 065

REACTIONS (22)
  - Metastases to bone [Unknown]
  - Skull fracture [Unknown]
  - Mouth swelling [Unknown]
  - Ageusia [Not Recovered/Not Resolved]
  - Gastritis [Not Recovered/Not Resolved]
  - Drug intolerance [Unknown]
  - Pleural fibrosis [Unknown]
  - Onychoclasis [Unknown]
  - Nail discolouration [Unknown]
  - Neck injury [Unknown]
  - Alopecia [Unknown]
  - Fall [Unknown]
  - Dyspnoea [Unknown]
  - Drug hypersensitivity [Unknown]
  - Somnolence [Unknown]
  - Decreased appetite [Unknown]
  - Abdominal pain upper [Unknown]
  - Vomiting [Unknown]
  - Pruritus [Unknown]
  - Hypersensitivity [Unknown]
  - Product blister packaging issue [Unknown]
  - Inappropriate schedule of product administration [Unknown]
